FAERS Safety Report 7015275 (Version 5)
Quarter: 2013Q4

REPORT INFORMATION
  Report Type: Report from Study
  Country: FI (occurrence: FI)
  Receive Date: 20090609
  Receipt Date: 20131212
  Transmission Date: 20140711
  Serious: Yes (Hospitalization, Other)
  Sender: FDA-Public Use
  Company Number: FI-CELGENEUS-055-C5013-09051853

PATIENT
  Age: 63 Year
  Sex: Male
  Weight: 60 kg

DRUGS (7)
  1. REVLIMID [Suspect]
     Indication: PLASMA CELL MYELOMA
     Dosage: 25 MILLIGRAM
     Route: 048
     Dates: start: 20090305
  2. REVLIMID [Suspect]
     Dosage: 25 MILLIGRAM
     Route: 048
     Dates: start: 20090402, end: 20090422
  3. DEXAMETHASONE [Suspect]
     Indication: PLASMA CELL MYELOMA
     Dosage: 20 MILLIGRAM
     Route: 048
     Dates: start: 20090305, end: 20090422
  4. OXYCONTIN [Suspect]
     Indication: PAIN
     Dosage: 40 MILLIGRAM
     Route: 048
     Dates: start: 20080428
  5. BONEFOS [Concomitant]
     Indication: OSTEOPOROSIS PROPHYLAXIS
     Dosage: 1600 MILLIGRAM
     Route: 048
     Dates: start: 20060529
  6. SOMAC [Concomitant]
     Indication: PROPHYLAXIS AGAINST GASTROINTESTINAL ULCER
     Dosage: 40 MILLIGRAM
     Route: 048
     Dates: start: 20060529
  7. IDEOS [Concomitant]
     Indication: BLOOD CALCIUM
     Route: 048
     Dates: start: 20060529

REACTIONS (2)
  - Intestinal obstruction [Recovered/Resolved]
  - Constipation [Recovered/Resolved]
